FAERS Safety Report 18457248 (Version 1)
Quarter: 2020Q4

REPORT INFORMATION
  Report Type: Spontaneous
  Country: US (occurrence: US)
  Receive Date: 20201030
  Receipt Date: 20201030
  Transmission Date: 20210114
  Serious: Yes (Other)
  Sender: FDA-Public Use
  Company Number: US-DRREDDYS-USA/USA/20/0128548

PATIENT
  Age: 54 Year
  Sex: Female

DRUGS (3)
  1. IBUPROFEN. [Suspect]
     Active Substance: IBUPROFEN
     Indication: SCIATICA
  2. LITHIUM. [Suspect]
     Active Substance: LITHIUM
     Indication: SCHIZOPHRENIA
  3. QUETIAPINE FUMARATE TABLETS [Suspect]
     Active Substance: QUETIAPINE FUMARATE
     Indication: SCHIZOPHRENIA

REACTIONS (14)
  - Psychomotor retardation [Unknown]
  - Partial seizures [Unknown]
  - Diarrhoea [Unknown]
  - Vomiting [Unknown]
  - Metabolic acidosis [Unknown]
  - Tremor [Unknown]
  - Respiratory failure [Unknown]
  - Metabolic encephalopathy [Recovering/Resolving]
  - Altered state of consciousness [Unknown]
  - Disorientation [Unknown]
  - Antipsychotic drug level increased [Unknown]
  - Nausea [Unknown]
  - Acute kidney injury [Unknown]
  - Respiratory rate decreased [Unknown]
